FAERS Safety Report 19331700 (Version 4)
Quarter: 2021Q3

REPORT INFORMATION
  Report Type: Spontaneous
  Country: DE (occurrence: DE)
  Receive Date: 20210529
  Receipt Date: 20210713
  Transmission Date: 20211014
  Serious: Yes (Other)
  Sender: FDA-Public Use
  Company Number: DE-ROCHE-2827445

PATIENT
  Age: 53 Year
  Sex: Female
  Weight: 60 kg

DRUGS (2)
  1. EVRYSDI [Suspect]
     Active Substance: RISDIPLAM
     Indication: SPINAL MUSCULAR ATROPHY
     Route: 048
     Dates: start: 20210407
  2. EVRYSDI [Suspect]
     Active Substance: RISDIPLAM
     Route: 048
     Dates: start: 20210413

REACTIONS (9)
  - Dysmenorrhoea [Unknown]
  - Drug ineffective [Unknown]
  - Cystitis noninfective [Recovered/Resolved]
  - Urinary incontinence [Recovered/Resolved]
  - Pain [Not Recovered/Not Resolved]
  - Micturition urgency [Recovered/Resolved]
  - Postmenopausal haemorrhage [Recovered/Resolved]
  - Gamma-glutamyltransferase increased [Unknown]
  - Weight increased [Not Recovered/Not Resolved]

NARRATIVE: CASE EVENT DATE: 20210408
